FAERS Safety Report 4898585-4 (Version None)
Quarter: 2006Q1

REPORT INFORMATION
  Report Type: 
  Country: None (occurrence: None)
  Receive Date: 20060130
  Receipt Date: 20060110
  Transmission Date: 20060701
  Serious: Yes (Other)
  Sender: FDA-Public Use
  Company Number: DSA_26914_2005

PATIENT

DRUGS (1)
  1. ATIVAN [Suspect]
     Dosage: DF

REACTIONS (1)
  - BRAIN DAMAGE [None]
